FAERS Safety Report 10206331 (Version 2)
Quarter: 2014Q3

REPORT INFORMATION
  Report Type: Report from Study
  Country: US (occurrence: US)
  Receive Date: 20140530
  Receipt Date: 20140707
  Transmission Date: 20150326
  Serious: Yes (Death)
  Sender: FDA-Public Use
  Company Number: PHEH2014US010870

PATIENT
  Age: 51 Year
  Sex: Male

DRUGS (3)
  1. VITAMIN D3 [Concomitant]
     Active Substance: CHOLECALCIFEROL
  2. AFINITOR [Suspect]
     Active Substance: EVEROLIMUS
     Indication: NEUROENDOCRINE CARCINOMA
     Dosage: 10 MG, QD
     Route: 048
     Dates: start: 20121214
  3. IRON [Concomitant]
     Active Substance: IRON

REACTIONS (1)
  - Neuroendocrine carcinoma [Fatal]

NARRATIVE: CASE EVENT DATE: 20140422
